FAERS Safety Report 5302309-6 (Version None)
Quarter: 2007Q2

REPORT INFORMATION
  Report Type: 
  Country: None (occurrence: None)
  Receive Date: 20070419
  Receipt Date: 20070410
  Transmission Date: 20071010
  Serious: Yes (Hospitalization)
  Sender: FDA-Public Use
  Company Number: 2007SE01938

PATIENT
  Sex: Male

DRUGS (1)
  1. ZOLADEX [Suspect]
     Route: 058

REACTIONS (4)
  - EOSINOPHILIA [None]
  - IMPETIGO [None]
  - INFLAMMATION [None]
  - SCROTAL ULCER [None]
